FAERS Safety Report 5486160-2 (Version None)
Quarter: 2007Q4

REPORT INFORMATION
  Report Type: 
  Country: None (occurrence: None)
  Receive Date: 20071015
  Receipt Date: 20071003
  Transmission Date: 20080405
  Serious: Yes (Other)
  Sender: FDA-Public Use
  Company Number: US-PFIZER INC-2007082520

PATIENT
  Sex: Female
  Weight: 53.5 kg

DRUGS (3)
  1. LYRICA [Suspect]
     Indication: FIBROMYALGIA
     Dates: start: 20070927, end: 20070929
  2. CENTRUM SILVER [Concomitant]
  3. FISH OIL [Concomitant]

REACTIONS (2)
  - PARANOIA [None]
  - PSYCHOTIC DISORDER [None]
